FAERS Safety Report 4925043-0 (Version None)
Quarter: 2006Q1

REPORT INFORMATION
  Report Type: 
  Country: None (occurrence: None)
  Receive Date: 20060222
  Receipt Date: 20060215
  Transmission Date: 20060701
  Serious: Yes (Other)
  Sender: FDA-Public Use
  Company Number: 144619USA

PATIENT
  Age: 41 Year
  Sex: Female
  Weight: 63.05 kg

DRUGS (3)
  1. POTASSIUM CHLORIDE [Suspect]
     Indication: PALPITATIONS
     Dosage: 8 Q ORAL
     Route: 048
     Dates: start: 20060210, end: 20060214
  2. PULMICORT [Concomitant]
  3. PREVACID [Concomitant]

REACTIONS (3)
  - HYPERSENSITIVITY [None]
  - MUSCLE TIGHTNESS [None]
  - THROAT TIGHTNESS [None]
